FAERS Safety Report 9789132 (Version 2)
Quarter: 2014Q1

REPORT INFORMATION
  Report Type: Spontaneous
  Country: US (occurrence: US)
  Receive Date: 20131230
  Receipt Date: 20140218
  Transmission Date: 20141002
  Serious: Yes (Other)
  Sender: FDA-Public Use
  Company Number: US-GILEAD-2013-0090997

PATIENT
  Sex: Female

DRUGS (12)
  1. LETAIRIS [Suspect]
     Indication: PRODUCT USED FOR UNKNOWN INDICATION
     Dosage: 5 MG, QD
     Route: 065
     Dates: start: 20131216, end: 20131227
  2. ALBUTEROL                          /00139501/ [Concomitant]
  3. ASPIRIN [Concomitant]
  4. COENZYME Q10 [Concomitant]
  5. ESTER C                            /00008004/ [Concomitant]
  6. IPRATROPIUM [Concomitant]
  7. SYMBICORT [Concomitant]
  8. VENTOLIN                           /00139501/ [Concomitant]
  9. VITAMIN B12 NOS [Concomitant]
  10. VITAMIN D NOS [Concomitant]
  11. OXYGEN [Concomitant]
     Dosage: 1 UNK, UNK
  12. OXYGEN [Concomitant]
     Dosage: 2 UNK, UNK
     Dates: start: 20130820

REACTIONS (2)
  - Drug ineffective [Unknown]
  - Dyspnoea [Unknown]
